FAERS Safety Report 16588938 (Version 1)
Quarter: 2019Q3

REPORT INFORMATION
  Report Type: Spontaneous
  Country: JP (occurrence: JP)
  Receive Date: 20190718
  Receipt Date: 20190718
  Transmission Date: 20191004
  Serious: Yes (Life-Threatening, Hospitalization, Other)
  Sender: FDA-Public Use
  Company Number: JP-ALKEM LABORATORIES LIMITED-JP-ALKEM-2019-06441

PATIENT
  Age: 66 Year
  Sex: Male

DRUGS (7)
  1. TIAPRIDE [Concomitant]
     Active Substance: TIAPRIDE
     Indication: DEPRESSION
     Dosage: UNK
     Route: 065
  2. SUVOREXANT. [Concomitant]
     Active Substance: SUVOREXANT
     Indication: DEPRESSION
     Dosage: UNK
     Route: 065
  3. MIANSERIN [Concomitant]
     Active Substance: MIANSERIN
     Indication: DEPRESSION
     Dosage: UNK
     Route: 065
  4. QUETIAPINE FUMARATE. [Suspect]
     Active Substance: QUETIAPINE FUMARATE
     Indication: DELIRIUM
     Dosage: 12.5 MILLIGRAM
     Route: 065
     Dates: start: 201707
  5. RAMELTEON [Concomitant]
     Active Substance: RAMELTEON
     Indication: DEPRESSION
     Dosage: UNK
     Route: 065
  6. QUETIAPINE FUMARATE. [Suspect]
     Active Substance: QUETIAPINE FUMARATE
     Dosage: 25 MILLIGRAM
     Route: 065
     Dates: start: 201708
  7. PAROXETINE. [Concomitant]
     Active Substance: PAROXETINE
     Indication: DEPRESSION
     Dosage: UNK
     Route: 065

REACTIONS (5)
  - Diabetic ketoacidosis [Unknown]
  - Type 2 diabetes mellitus [Unknown]
  - Gastrointestinal necrosis [Unknown]
  - Glucose tolerance impaired [Unknown]
  - Intestinal ischaemia [Unknown]
